FAERS Safety Report 18074425 (Version 1)
Quarter: 2020Q3

REPORT INFORMATION
  Report Type: Spontaneous
  Country: US (occurrence: US)
  Receive Date: 20200727
  Receipt Date: 20200727
  Transmission Date: 20201103
  Serious: No
  Sender: FDA-Public Use
  Company Number: US-PFIZER INC-2020284321

PATIENT
  Age: 63 Year
  Sex: Female

DRUGS (2)
  1. VENCLEXTA [Suspect]
     Active Substance: VENETOCLAX
     Indication: B-CELL LYMPHOMA
  2. TOVIAZ [Suspect]
     Active Substance: FESOTERODINE FUMARATE

REACTIONS (1)
  - Urethral syndrome [Unknown]

NARRATIVE: CASE EVENT DATE: 202007
